FAERS Safety Report 14060552 (Version 1)
Quarter: 2017Q4

REPORT INFORMATION
  Report Type: Report from Study
  Country: None (occurrence: NL)
  Receive Date: 20171006
  Receipt Date: 20171006
  Transmission Date: 20180321
  Serious: Yes (Hospitalization, Other)
  Sender: FDA-Public Use
  Company Number: NL-ABBVIE-17K-114-2121985-00

PATIENT
  Age: 80 Year
  Sex: Male

DRUGS (1)
  1. DUODOPA [Suspect]
     Active Substance: CARBIDOPA\LEVODOPA
     Indication: PARKINSON^S DISEASE
     Dosage: MD: 10.4, CD: 4.2, ED: 3.5
     Route: 050
     Dates: start: 20100519

REACTIONS (3)
  - Surgical failure [Unknown]
  - Wound dehiscence [Recovering/Resolving]
  - Intestinal polyp [Recovering/Resolving]

NARRATIVE: CASE EVENT DATE: 2017
